FAERS Safety Report 7368747-5 (Version None)
Quarter: 2011Q1

REPORT INFORMATION
  Report Type: 
  Country: None (occurrence: None)
  Receive Date: 20110323
  Receipt Date: 20110321
  Transmission Date: 20110831
  Serious: Yes (Death, Other)
  Sender: FDA-Public Use
  Company Number: US-AMGEN-USASP2011014107

PATIENT
  Age: 67 Year
  Sex: Male

DRUGS (4)
  1. CORTICOSTEROIDS [Concomitant]
  2. PROMACTA [Concomitant]
  3. NPLATE [Suspect]
     Dates: start: 20100929
  4. NPLATE [Suspect]
     Indication: THROMBOCYTOPENIA
     Dosage: UNK
     Dates: start: 20100929

REACTIONS (6)
  - AORTIC VALVE REPLACEMENT [None]
  - PNEUMONIA [None]
  - CARDIAC DISORDER [None]
  - DRUG INEFFECTIVE [None]
  - CARDIAC FAILURE [None]
  - ACUTE RESPIRATORY DISTRESS SYNDROME [None]
